FAERS Safety Report 10963417 (Version 1)
Quarter: 2015Q1

REPORT INFORMATION
  Report Type: Spontaneous
  Country: US (occurrence: None)
  Receive Date: 20150326
  Receipt Date: 20150326
  Transmission Date: 20150721
  Serious: Yes (Hospitalization, Other)
  Sender: FDA-Public Use
  Company Number: 1572929

PATIENT
  Age: 35 Year
  Sex: Male

DRUGS (3)
  1. FLUOXETINE HYDROCHLORIDE (NON-SPECIFIC) [Suspect]
     Active Substance: FLUOXETINE HYDROCHLORIDE
     Indication: GENERALISED ANXIETY DISORDER
  2. CLONAZEPAM. [Concomitant]
     Active Substance: CLONAZEPAM
  3. SERTRALINE [Suspect]
     Active Substance: SERTRALINE HYDROCHLORIDE
     Indication: GENERALISED ANXIETY DISORDER
     Route: 048

REACTIONS (4)
  - Parkinsonism [None]
  - Generalised anxiety disorder [None]
  - Disease recurrence [None]
  - Treatment noncompliance [None]
